FAERS Safety Report 4737329-3 (Version None)
Quarter: 2005Q3

REPORT INFORMATION
  Report Type: 
  Country: None (occurrence: None)
  Receive Date: 20050808
  Receipt Date: 20050727
  Transmission Date: 20060218
  Serious: Yes (Other)
  Sender: FDA-Public Use
  Company Number: PHNU2005DE02712

PATIENT
  Age: 66 Year
  Sex: Female

DRUGS (4)
  1. ZOMETA [Suspect]
     Indication: BREAST CANCER METASTATIC
     Dosage: 4 MG, QMO
     Dates: start: 20050201, end: 20050509
  2. AREDIA [Suspect]
     Indication: BREAST CANCER METASTATIC
     Dosage: 60 MG, QMO
     Route: 042
     Dates: start: 20010101
  3. TAMOXIFEN [Concomitant]
     Dates: start: 19970101, end: 20020101
  4. FEMARA [Concomitant]
     Dosage: 2.5 MG, UNK
     Dates: start: 20020101

REACTIONS (3)
  - ASEPTIC NECROSIS BONE [None]
  - IMPAIRED HEALING [None]
  - TOOTH EXTRACTION [None]
